FAERS Safety Report 9565252 (Version 2)
Quarter: 2013Q3

REPORT INFORMATION
  Report Type: Report from Study
  Country: FR (occurrence: FR)
  Receive Date: 20130930
  Receipt Date: 20130930
  Transmission Date: 20140515
  Serious: Yes (Other)
  Sender: FDA-Public Use
  Company Number: FR-UCBSA-078777

PATIENT
  Age: 66 Year
  Sex: Female
  Weight: 76 kg

DRUGS (12)
  1. CIMZIA [Suspect]
     Indication: RHEUMATOID ARTHRITIS
     Route: 058
     Dates: start: 20120802
  2. PREDNISONE [Suspect]
     Indication: RHEUMATOID ARTHRITIS
     Route: 048
     Dates: start: 201106
  3. PREDNISONE [Suspect]
     Indication: RHEUMATOID ARTHRITIS
     Dosage: DAILY DOSE: 20 MG
     Route: 048
     Dates: start: 20121016, end: 20121026
  4. PREDNISONE [Suspect]
     Indication: RHEUMATOID ARTHRITIS
     Dosage: DAILY DOSE: 10 MG
     Route: 048
     Dates: start: 20121027, end: 20121105
  5. PREDNISONE [Suspect]
     Indication: RHEUMATOID ARTHRITIS
     Dosage: DAILY DOSE: 8 MG
     Route: 048
     Dates: end: 20130905
  6. PLAQUENIL [Concomitant]
     Indication: RHEUMATOID ARTHRITIS
     Route: 048
     Dates: start: 201104
  7. PLAQUENIL [Concomitant]
     Indication: RHEUMATOID ARTHRITIS
     Dosage: DAILY DOSE:600 MG
     Route: 048
     Dates: start: 1998, end: 2001
  8. CALCIDOSE 500 VIT D [Concomitant]
     Indication: OSTEOPOROSIS
     Dosage: 1 BAG DAILY
     Dates: start: 2003
  9. ACTONEL [Concomitant]
     Indication: OSTEOPOROSIS
     Dates: start: 2003
  10. TEMERIT [Concomitant]
     Indication: HYPERTENSION
     Dosage: DAILY DOSE: 5 MG
     Dates: start: 1996
  11. LANTUS [Concomitant]
     Indication: DIABETES MELLITUS
     Dosage: 10-12 IU TWICE DAILY
     Dates: start: 2007
  12. FORTZAAR [Concomitant]
     Indication: HYPERTENSION
     Dosage: 100/25MG DAILY
     Dates: start: 1996

REACTIONS (2)
  - Dermatitis [Not Recovered/Not Resolved]
  - Lung infection [Recovered/Resolved]
